FAERS Safety Report 4957646-1 (Version None)
Quarter: 2006Q1

REPORT INFORMATION
  Report Type: 
  Country: None (occurrence: None)
  Receive Date: 20060324
  Receipt Date: 20060314
  Transmission Date: 20060701
  Serious: Yes (Hospitalization, Disabling)
  Sender: FDA-Public Use
  Company Number: NUBN20060002

PATIENT
  Sex: Male

DRUGS (3)
  1. NUBAIN [Suspect]
     Indication: LABOUR PAIN
     Dosage: 6 MG TRANSPLACENTAL
     Route: 064
     Dates: start: 19990702, end: 19990702
  2. SUFENTA (SUFENTAIL CITRATE) [Concomitant]
  3. BENADRYL (DIPHENHYDRAMINE HCL) [Concomitant]

REACTIONS (10)
  - ATTENTION DEFICIT/HYPERACTIVITY DISORDER [None]
  - BORDERLINE MENTAL IMPAIRMENT [None]
  - COMPLICATIONS OF MATERNAL EXPOSURE TO THERAPEUTIC DRUGS [None]
  - CONDUCT DISORDER [None]
  - CYANOSIS NEONATAL [None]
  - DEVELOPMENTAL COORDINATION DISORDER [None]
  - DEVELOPMENTAL DELAY [None]
  - DRUG EXPOSURE DURING PREGNANCY [None]
  - MIXED RECEPTIVE-EXPRESSIVE LANGUAGE DISORDER [None]
  - MOOD DISORDER DUE TO A GENERAL MEDICAL CONDITION [None]
